FAERS Safety Report 4442042-6 (Version None)
Quarter: 2004Q3

REPORT INFORMATION
  Report Type: 
  Country: None (occurrence: None)
  Receive Date: 20040901
  Receipt Date: 20040816
  Transmission Date: 20050211
  Serious: Yes (Death, Hospitalization, Other)
  Sender: FDA-Public Use
  Company Number: THQ2004A00734

PATIENT
  Age: 86 Year
  Sex: Male

DRUGS (3)
  1. LANSOPRAZOLE [Suspect]
     Dosage: PER ORAL
     Route: 048
  2. OXYGEN (OXYGEN) [Concomitant]
  3. PAINKILLER (ANALGESICS) [Concomitant]

REACTIONS (8)
  - DEVICE FAILURE [None]
  - DRUG HYPERSENSITIVITY [None]
  - DYSPHAGIA [None]
  - EMOTIONAL DISTRESS [None]
  - INFECTION [None]
  - MEDICATION ERROR [None]
  - PNEUMONIA [None]
  - STAPHYLOCOCCAL INFECTION [None]
